FAERS Safety Report 9983414 (Version 3)
Quarter: 2014Q1

REPORT INFORMATION
  Report Type: Spontaneous
  Country: IL (occurrence: IL)
  Receive Date: 20140307
  Receipt Date: 20140314
  Transmission Date: 20141002
  Serious: Yes (Death, Hospitalization, Other)
  Sender: FDA-Public Use
  Company Number: IL-009507513-1308ISR009017

PATIENT
  Age: 64 Year
  Sex: Male

DRUGS (8)
  1. VICTRELIS [Suspect]
     Indication: HEPATITIS C
     Dosage: TOTAL DAILY DOSE: 4 -3 PILLS
     Route: 048
     Dates: start: 20130701
  2. PEGASYS [Suspect]
     Indication: HEPATITIS C
     Dosage: UNK
     Dates: start: 20130711
  3. COPEGUS [Suspect]
     Indication: HEPATITIS C
     Dosage: UNK
     Dates: start: 20130711
  4. VIEPAX [Concomitant]
     Dosage: UNK
  5. DEKINET [Concomitant]
     Dosage: UNK
  6. RISPOND [Concomitant]
     Dosage: UNK
  7. BONDORMIN [Concomitant]
     Dosage: UNK
  8. NOZINAN [Concomitant]
     Dosage: UNK

REACTIONS (35)
  - Cardiac arrest [Fatal]
  - Myocardial infarction [Fatal]
  - Myocardial infarction [Recovering/Resolving]
  - Hepatic pain [Recovering/Resolving]
  - Pain in extremity [Unknown]
  - Angina pectoris [Unknown]
  - Hepatic pain [Recovering/Resolving]
  - Skin irritation [Recovered/Resolved]
  - Somnolence [Not Recovered/Not Resolved]
  - Hepatic pain [Not Recovered/Not Resolved]
  - Haematocrit decreased [Unknown]
  - Lymphocyte count increased [Unknown]
  - Hepatic pain [Not Recovered/Not Resolved]
  - Pruritus [Not Recovered/Not Resolved]
  - Hepatic pain [Not Recovered/Not Resolved]
  - Renal pain [Recovered/Resolved]
  - Hepatic pain [Not Recovered/Not Resolved]
  - Pain in extremity [Not Recovered/Not Resolved]
  - Pain [Not Recovered/Not Resolved]
  - Cholelithiasis [Not Recovered/Not Resolved]
  - Angina pectoris [Not Recovered/Not Resolved]
  - Nasopharyngitis [Not Recovered/Not Resolved]
  - Rhinorrhoea [Not Recovered/Not Resolved]
  - Catheterisation cardiac [Unknown]
  - Hepatic pain [Recovering/Resolving]
  - Resuscitation [Not Recovered/Not Resolved]
  - Lacrimation increased [Not Recovered/Not Resolved]
  - Pyrexia [Not Recovered/Not Resolved]
  - Asthenia [Not Recovered/Not Resolved]
  - Haemoglobin decreased [Unknown]
  - Neutrophil count decreased [Unknown]
  - Red blood cell count decreased [Unknown]
  - Chills [Not Recovered/Not Resolved]
  - Asthenia [Recovering/Resolving]
  - Haemoglobin decreased [Recovering/Resolving]
